FAERS Safety Report 14225705 (Version 1)
Quarter: 2017Q4

REPORT INFORMATION
  Report Type: Spontaneous
  Country: US (occurrence: US)
  Receive Date: 20171127
  Receipt Date: 20171127
  Transmission Date: 20180321
  Serious: No
  Sender: FDA-Public Use
  Company Number: US-PFIZER INC-2017508836

PATIENT
  Age: 77 Year
  Sex: Male

DRUGS (10)
  1. LORAZEPAM. [Suspect]
     Active Substance: LORAZEPAM
     Dosage: UNK
  2. PREDNISONE. [Suspect]
     Active Substance: PREDNISONE
     Dosage: UNK
  3. AMOXICILLIN. [Suspect]
     Active Substance: AMOXICILLIN
     Dosage: UNK
  4. NORTRIPTYLINE [Suspect]
     Active Substance: NORTRIPTYLINE
     Dosage: UNK
  5. LEVAQUIN [Suspect]
     Active Substance: LEVOFLOXACIN
     Dosage: UNK
  6. CLONAZEPAM. [Suspect]
     Active Substance: CLONAZEPAM
     Dosage: UNK
  7. KADIAN [Suspect]
     Active Substance: MORPHINE SULFATE
     Dosage: UNK
  8. COMPAZINE [Suspect]
     Active Substance: PROCHLORPERAZINE MALEATE
     Dosage: UNK
  9. DARVON [Suspect]
     Active Substance: PROPOXYPHENE HYDROCHLORIDE
     Dosage: UNK
  10. COMPAZINE [Suspect]
     Active Substance: PROCHLORPERAZINE MALEATE
     Dosage: UNK

REACTIONS (1)
  - Drug hypersensitivity [Unknown]
